FAERS Safety Report 6646360-2 (Version None)
Quarter: 2010Q1

REPORT INFORMATION
  Report Type: 
  Country: None (occurrence: None)
  Receive Date: 20100323
  Receipt Date: 20100318
  Transmission Date: 20100710
  Serious: Yes (Hospitalization, Other)
  Sender: FDA-Public Use
  Company Number: DE-ROCHE-689531

PATIENT
  Sex: Female
  Weight: 55 kg

DRUGS (5)
  1. BONIVA [Suspect]
     Indication: OSTEOPOROSIS
     Route: 042
     Dates: start: 20100223
  2. ACETYLSALICYLIC ACID [Concomitant]
     Route: 048
  3. PANTOPRAZOL [Concomitant]
     Route: 048
  4. IBUPROFEN [Concomitant]
     Dosage: LAST ADMINISTRATION PRIOR TO THE EVENTS ON 23 FEB 2010
     Route: 048
  5. CALCIUM/VITAMIN D [Concomitant]
     Route: 048

REACTIONS (3)
  - ANGINA PECTORIS [None]
  - BLOOD PRESSURE INCREASED [None]
  - TETANY [None]
